FAERS Safety Report 4714940-7 (Version None)
Quarter: 2005Q3

REPORT INFORMATION
  Report Type: 
  Country: None (occurrence: None)
  Receive Date: 20050713
  Receipt Date: 20050704
  Transmission Date: 20060218
  Serious: Yes (Hospitalization, Other)
  Sender: FDA-Public Use
  Company Number: 2005091349

PATIENT
  Age: 75 Year
  Sex: Male

DRUGS (4)
  1. NEURONTIN [Suspect]
     Indication: ILL-DEFINED DISORDER
     Dosage: ORAL
     Route: 048
  2. NIFEDIPINE [Suspect]
     Indication: ILL-DEFINED DISORDER
     Dosage: ORAL
     Route: 048
  3. KARDEGIC (ACETYLSALICYLATE LYSINE) [Concomitant]
  4. HYPERIUM (RILMENIDINE) [Concomitant]

REACTIONS (15)
  - ALANINE AMINOTRANSFERASE INCREASED [None]
  - ANTIBODY TEST POSITIVE [None]
  - ANTIMITOCHONDRIAL ANTIBODY POSITIVE [None]
  - ANTINUCLEAR ANTIBODY POSITIVE [None]
  - ARRHYTHMIA [None]
  - ASCITES [None]
  - ASPARTATE AMINOTRANSFERASE INCREASED [None]
  - ATRIAL FIBRILLATION [None]
  - BILIARY CIRRHOSIS PRIMARY [None]
  - BLOOD ALKALINE PHOSPHATASE INCREASED [None]
  - BLOOD BILIRUBIN INCREASED [None]
  - CARDIAC FAILURE [None]
  - HEPATIC ENZYME INCREASED [None]
  - LUNG DISORDER [None]
  - LYMPHADENOPATHY [None]
